FAERS Safety Report 24366937 (Version 1)
Quarter: 2024Q3

REPORT INFORMATION
  Report Type: Spontaneous
  Country: BE (occurrence: BE)
  Receive Date: 20240926
  Receipt Date: 20240926
  Transmission Date: 20241016
  Serious: Yes (Hospitalization)
  Sender: TEVA
  Company Number: BE-TEVA-VS-3244902

PATIENT
  Age: 49 Year
  Sex: Male

DRUGS (6)
  1. DOXORUBICIN [Suspect]
     Active Substance: DOXORUBICIN
     Indication: Bladder cancer
     Dosage: DOSE?WAS ADDED TO THE HIPEC CIRCUIT FOR A TOTAL DOSE OF 29.6MG
     Route: 065
  2. MITOMYCIN [Suspect]
     Active Substance: MITOMYCIN
     Indication: Bladder cancer
     Dosage: DOSE WAS ADDED TO THE HIPEC CIRCUIT FOR A TOTAL DOSE OF 29.6MG
     Route: 065
  3. LEUCOVORIN [Suspect]
     Active Substance: LEUCOVORIN\LEUCOVORIN CALCIUM
     Indication: Bladder cancer
     Dosage: LEUKOVORIN, RECEIVED TOTAL DOSE OF 39.4MG; RECEIVED A FAST BOLUS THROUGH TWO SEPARATE IV LINES
     Route: 040
  4. SODIUM CHLORIDE [Concomitant]
     Active Substance: SODIUM CHLORIDE
     Indication: Vehicle solution use
     Dosage: RECEIVED A FAST BOLUS THROUGH TWO SEPARATE IV LINES; FOLINIC-ACID IN 250?ML 0.9%?SODIUM-CHLORIDE
     Route: 040
  5. SODIUM CHLORIDE [Concomitant]
     Active Substance: SODIUM CHLORIDE
     Indication: Vehicle solution use
     Dosage: RECEIVED FLUOROURACIL IN 250ML SODIUM-CHLORIDE
     Route: 065
  6. FLUOROURACIL [Suspect]
     Active Substance: FLUOROURACIL
     Indication: Bladder cancer
     Dosage: 5-FLUOROURACIL RECEIVED TOTAL DOSE OF 788MG
     Route: 065

REACTIONS (3)
  - Atrioventricular block complete [Unknown]
  - Off label use [Unknown]
  - Adams-Stokes syndrome [Unknown]
